FAERS Safety Report 21494563 (Version 1)
Quarter: 2022Q4

REPORT INFORMATION
  Report Type: Spontaneous
  Country: CN (occurrence: CN)
  Receive Date: 20221021
  Receipt Date: 20221021
  Transmission Date: 20230113
  Serious: Yes (Hospitalization, Other)
  Sender: FDA-Public Use
  Company Number: CN-009507513-2210CHN006458

PATIENT
  Age: 92 Year
  Sex: Female

DRUGS (3)
  1. CILASTATIN SODIUM\IMIPENEM [Suspect]
     Active Substance: CILASTATIN SODIUM\IMIPENEM
     Indication: Pneumonia
     Dosage: 0.5 GRAM, TID
     Route: 041
     Dates: start: 20220919, end: 20220925
  2. LEVOFLOXACIN [Suspect]
     Active Substance: LEVOFLOXACIN
     Indication: Pneumonia
     Dosage: 0.5 GRAM, QD
     Route: 041
     Dates: start: 20220914, end: 20220925
  3. AMINOPHYLLINE [Concomitant]
     Active Substance: AMINOPHYLLINE
     Indication: Wheezing
     Dosage: 0.25 GRAM, BID
     Route: 041
     Dates: start: 20220914, end: 20220925

REACTIONS (2)
  - Epilepsy [Recovered/Resolved with Sequelae]
  - Somnolence [Unknown]

NARRATIVE: CASE EVENT DATE: 20220101
